FAERS Safety Report 17410567 (Version 4)
Quarter: 2020Q1

REPORT INFORMATION
  Report Type: Spontaneous
  Country: FR (occurrence: FR)
  Receive Date: 20200212
  Receipt Date: 20200228
  Transmission Date: 20200409
  Serious: Yes (Life-Threatening, Hospitalization)
  Sender: FDA-Public Use
  Company Number: NVSC2020FR036176

PATIENT
  Age: 44 Year
  Sex: Female
  Weight: 97 kg

DRUGS (8)
  1. ENTRESTO [Suspect]
     Active Substance: SACUBITRIL\VALSARTAN
     Indication: CARDIAC FAILURE
     Dosage: 1 DF, BID
     Route: 048
     Dates: start: 20200129, end: 20200208
  2. AMIODARONE ALMUS [Suspect]
     Active Substance: AMIODARONE
     Indication: CARDIAC FAILURE
     Dosage: 200 MG (IN THE MORNING)
     Route: 048
     Dates: start: 20200201
  3. ENTRESTO [Suspect]
     Active Substance: SACUBITRIL\VALSARTAN
     Dosage: 200 MG, QD (IN THE MORNING)
     Route: 048
     Dates: start: 20200201
  4. ENTRESTO [Suspect]
     Active Substance: SACUBITRIL\VALSARTAN
     Dosage: UNK
     Route: 065
     Dates: start: 20200208
  5. FUROSEMIDE. [Concomitant]
     Active Substance: FUROSEMIDE
     Indication: DEHYDRATION
     Dosage: 0.5 DF, QD (40 MG) (IN THE MORNING) (BETWEEN 26 JAN 2020 AND 27 JAN 2020)
     Route: 048
     Dates: start: 20200126
  6. BISOPROLOL [Concomitant]
     Active Substance: BISOPROLOL
     Indication: CARDIAC FAILURE
     Dosage: 1.25 MG, BID (AROUND FEB 2016)
     Route: 048
     Dates: start: 201602
  7. SPIRONOLACTONE. [Concomitant]
     Active Substance: SPIRONOLACTONE
     Indication: CARDIAC FAILURE
     Dosage: 25 MG, QD, IN THE MORNING (BETWEEN 26 JAN 2020 TO 27 JAN 2020)
     Route: 048
     Dates: start: 20200130
  8. LOVENOX [Concomitant]
     Active Substance: ENOXAPARIN SODIUM
     Indication: PRODUCT USED FOR UNKNOWN INDICATION
     Dosage: 4000 U/L, QD (IN THE MORNING) (BETWEEN 26 JAN 2020 AND 27 JAN 2020)
     Route: 065
     Dates: start: 20200126

REACTIONS (2)
  - Cardiac failure [Unknown]
  - Neutropenia [Not Recovered/Not Resolved]

NARRATIVE: CASE EVENT DATE: 20200203
